FAERS Safety Report 10072001 (Version 1)
Quarter: 2014Q1

REPORT INFORMATION
  Report Type: Spontaneous
  Country: BE (occurrence: None)
  Receive Date: 20140314
  Receipt Date: 20140314
  Transmission Date: 20141002
  Serious: Yes (Other)
  Sender: FDA-Public Use
  Company Number: BE-20140003

PATIENT
  Age: 60 Year
  Sex: Male

DRUGS (6)
  1. HEXABRIX 320 (IOXAGLIC ACID) UNKNOWN [Suspect]
     Indication: IMAGING PROCEDURE
     Route: 003
     Dates: start: 20140128, end: 20140128
  2. HEXABRIX 320 (IOXAGLIC ACID) UNKNOWN [Suspect]
     Indication: ARTHROPATHY
     Route: 003
     Dates: start: 20140128, end: 20140128
  3. ASAFLOW (ACETYLSALICYLIC ACID) [Concomitant]
  4. ZANTAC (RANITIDINE) (RANITIDINE) [Concomitant]
  5. BIOFENAC (ACECLOFENAC) (ACECLOFENAC) [Concomitant]
  6. BISOPROLOL (BISOPROLOL)(BISOPROLOL) [Concomitant]

REACTIONS (4)
  - Syncope [None]
  - Abdominal pain upper [None]
  - Hyperreflexia [None]
  - Hypotension [None]
